FAERS Safety Report 18633736 (Version 2)
Quarter: 2021Q3

REPORT INFORMATION
  Report Type: Spontaneous
  Country: US (occurrence: US)
  Receive Date: 20201218
  Receipt Date: 20210721
  Transmission Date: 20211014
  Serious: Yes (Other)
  Sender: FDA-Public Use
  Company Number: US-AMGEN-USASP2020204876

PATIENT
  Age: 74 Year
  Sex: Female

DRUGS (2)
  1. PROLIA [Suspect]
     Active Substance: DENOSUMAB
     Indication: OSTEOPOROSIS POSTMENOPAUSAL
     Dosage: UNK
     Route: 065
     Dates: start: 2019
  2. PREDNISONE. [Concomitant]
     Active Substance: PREDNISONE
     Indication: ASTHMA
     Dosage: 20 MILLIGRAM, QD

REACTIONS (13)
  - Tooth fracture [Not Recovered/Not Resolved]
  - Oral infection [Not Recovered/Not Resolved]
  - Sinusitis [Unknown]
  - Tooth disorder [Not Recovered/Not Resolved]
  - Tooth loss [Unknown]
  - Cataract [Unknown]
  - Dental caries [Unknown]
  - Gingivitis [Not Recovered/Not Resolved]
  - Tooth erosion [Not Recovered/Not Resolved]
  - Body height decreased [Unknown]
  - COVID-19 [Unknown]
  - Product dose omission issue [Unknown]
  - Frustration tolerance decreased [Unknown]

NARRATIVE: CASE EVENT DATE: 2020
